FAERS Safety Report 6725319-0 (Version None)
Quarter: 2010Q2

REPORT INFORMATION
  Report Type: 
  Country: None (occurrence: None)
  Receive Date: 20100512
  Receipt Date: 20100512
  Transmission Date: 20101027
  Serious: Yes (Hospitalization)
  Sender: FDA-Public Use
  Company Number: B0651898A

PATIENT
  Age: 3 Month
  Sex: Male
  Weight: 6.305 kg

DRUGS (1)
  1. CLOBETASOL PROPIONATE [Suspect]
     Indication: SKIN LESION
     Dosage: THREE TIMES PER DAY / TOPIC
     Route: 061

REACTIONS (12)
  - BLOOD CORTICOTROPHIN DECREASED [None]
  - BLOOD CORTISOL DECREASED [None]
  - CULTURE URINE POSITIVE [None]
  - CUSHING'S SYNDROME [None]
  - ESCHERICHIA URINARY TRACT INFECTION [None]
  - HEPATIC ENZYME INCREASED [None]
  - HYPERCHOLESTEROLAEMIA [None]
  - HYPERTRICHOSIS [None]
  - HYPERTRIGLYCERIDAEMIA [None]
  - INCORRECT DOSE ADMINISTERED [None]
  - INTENTIONAL DRUG MISUSE [None]
  - LOW DENSITY LIPOPROTEIN INCREASED [None]
